FAERS Safety Report 22761608 (Version 5)
Quarter: 2024Q1

REPORT INFORMATION
  Report Type: Spontaneous
  Country: US (occurrence: US)
  Receive Date: 20230728
  Receipt Date: 20240112
  Transmission Date: 20240409
  Serious: Yes (Other)
  Sender: FDA-Public Use
  Company Number: US-PFIZER INC-PV202300128825

PATIENT
  Age: 76 Year
  Sex: Female
  Weight: 52.4 kg

DRUGS (5)
  1. IBRANCE [Suspect]
     Active Substance: PALBOCICLIB
     Indication: Breast cancer female
     Dosage: 125 MG
     Dates: start: 20230608
  2. IBRANCE [Suspect]
     Active Substance: PALBOCICLIB
     Dosage: 100 MG
  3. IBRANCE [Suspect]
     Active Substance: PALBOCICLIB
     Dosage: TAKE 1 TABLET BY MOUTH 1 (ONE) TIME EACH DAY. TAKE DAILY DAYS 1 TO 21 OF CYCL THEN 7 DAYS OFF.
     Route: 048
  4. FULVESTRANT [Suspect]
     Active Substance: FULVESTRANT
     Dosage: UNK
  5. ZOMETA [Suspect]
     Active Substance: ZOLEDRONIC ACID
     Dosage: UNK

REACTIONS (5)
  - Neutropenia [Unknown]
  - White blood cell count decreased [Recovering/Resolving]
  - Malaise [Unknown]
  - Arthralgia [Unknown]
  - Asthenia [Unknown]
